FAERS Safety Report 4499919-5 (Version None)
Quarter: 2004Q4

REPORT INFORMATION
  Report Type: 
  Country: None (occurrence: None)
  Receive Date: 20041108
  Receipt Date: 20041102
  Transmission Date: 20050328
  Serious: Yes (Hospitalization, Other)
  Sender: FDA-Public Use
  Company Number: FRWYE165902NOV04

PATIENT
  Age: 53 Year
  Sex: Male

DRUGS (3)
  1. TAZOCILLINE (PIPERACILLN/TAZOBACTAM, INJECTION) [Suspect]
     Route: 042
     Dates: start: 20040101, end: 20040101
  2. OMEPRAZOLE [Suspect]
     Dates: end: 20040101
  3. TARGOCID [Suspect]
     Dates: start: 20040101, end: 20040101

REACTIONS (8)
  - CHILLS [None]
  - DERMATITIS EXFOLIATIVE [None]
  - DIAPEDESIS [None]
  - EOSINOPHILIA [None]
  - HAEMATURIA [None]
  - LEUKOPLAKIA ORAL [None]
  - PURPURA [None]
  - RASH MACULO-PAPULAR [None]
